FAERS Safety Report 6408810-6 (Version None)
Quarter: 2009Q4

REPORT INFORMATION
  Report Type: 
  Country: None (occurrence: None)
  Receive Date: 20091021
  Receipt Date: 20091011
  Transmission Date: 20100525
  Serious: Yes (Hospitalization)
  Sender: FDA-Public Use
  Company Number: B0598022A

PATIENT
  Age: 49 Year
  Sex: Female

DRUGS (2)
  1. LAPATINIB [Suspect]
     Route: 048
  2. XELODA [Concomitant]

REACTIONS (2)
  - CEREBELLAR SYNDROME [None]
  - CONFUSIONAL STATE [None]
